FAERS Safety Report 8890347 (Version 1)
Quarter: 2012Q4

REPORT INFORMATION
  Report Type: 
  Country: BR (occurrence: BR)
  Receive Date: 20121107
  Receipt Date: 20121107
  Transmission Date: 20130627
  Serious: Yes (Death)
  Sender: FDA-Public Use
  Company Number: PHHY2012BR101978

PATIENT
  Age: 77 Year
  Sex: Male

DRUGS (2)
  1. EXELON PATCH [Suspect]
     Indication: DEMENTIA ALZHEIMER^S TYPE
     Dosage: 4.6 mg/ 24hrs
     Route: 062
     Dates: start: 201201
  2. EXELON PATCH [Suspect]
     Dosage: 9.5 mg/ 24hrs
     Route: 062
     Dates: start: 201205

REACTIONS (1)
  - Pneumonia [Fatal]
